FAERS Safety Report 24662179 (Version 3)
Quarter: 2025Q3

REPORT INFORMATION
  Report Type: Report from Study
  Country: US (occurrence: US)
  Receive Date: 20241125
  Receipt Date: 20250814
  Transmission Date: 20251021
  Serious: Yes (Other)
  Sender: SUNOVION
  Company Number: US-SMPA-2024MYSCI0700742AA

PATIENT
  Age: 65 Year
  Sex: Male

DRUGS (7)
  1. ORGOVYX [Suspect]
     Active Substance: RELUGOLIX
     Indication: Prostate cancer
     Route: 048
     Dates: start: 20240510, end: 20240510
  2. ORGOVYX [Suspect]
     Active Substance: RELUGOLIX
     Dosage: 120 MG, QD
     Route: 048
     Dates: start: 20240511
  3. ORGOVYX [Suspect]
     Active Substance: RELUGOLIX
     Route: 048
  4. ORGOVYX [Suspect]
     Active Substance: RELUGOLIX
     Route: 048
     Dates: start: 20250510, end: 20250510
  5. ORGOVYX [Suspect]
     Active Substance: RELUGOLIX
     Route: 048
  6. ABIRATERONE [Suspect]
     Active Substance: ABIRATERONE
     Indication: Blood glucose increased
  7. PREDNISONE [Concomitant]
     Active Substance: PREDNISONE

REACTIONS (8)
  - Diabetes mellitus [Unknown]
  - Blood testosterone decreased [Unknown]
  - Micturition disorder [Recovering/Resolving]
  - Muscle strain [Unknown]
  - Paraesthesia [Unknown]
  - Muscle spasms [Unknown]
  - Nocturia [Unknown]
  - Pollakiuria [Unknown]
